FAERS Safety Report 9519860 (Version 1)
Quarter: 2013Q3

REPORT INFORMATION
  Report Type: Spontaneous
  Country: CA (occurrence: CA)
  Receive Date: 20130912
  Receipt Date: 20130912
  Transmission Date: 20140515
  Serious: Yes (Hospitalization)
  Sender: FDA-Public Use
  Company Number: CA-MERCK-1309CAN003632

PATIENT
  Sex: Male
  Weight: 58.2 kg

DRUGS (17)
  1. INVANZ [Suspect]
     Indication: UROSEPSIS
     Dosage: 500 MG, QD
     Route: 042
  2. INVANZ [Suspect]
     Indication: OBSTRUCTIVE UROPATHY
  3. INSULIN [Concomitant]
     Indication: PRODUCT USED FOR UNKNOWN INDICATION
     Dosage: UNK, BID
     Route: 065
  4. AMLODIPINE [Concomitant]
     Indication: PRODUCT USED FOR UNKNOWN INDICATION
     Dosage: 5 MG, QD
     Route: 065
  5. TAMSULOSIN HYDROCHLORIDE [Concomitant]
     Indication: PRODUCT USED FOR UNKNOWN INDICATION
     Dosage: 0.4 MG, QD
     Route: 065
  6. PANTOPRAZOLE [Concomitant]
     Indication: PRODUCT USED FOR UNKNOWN INDICATION
     Dosage: 40 MG, QD
     Route: 065
  7. LORAZEPAM [Concomitant]
     Indication: PRODUCT USED FOR UNKNOWN INDICATION
     Dosage: 1 MG, HS, PRN
     Route: 065
  8. CETIRIZINE HYDROCHLORIDE [Concomitant]
     Indication: PRODUCT USED FOR UNKNOWN INDICATION
     Dosage: 10 MG, QD
     Route: 065
  9. ACETAMINOPHEN [Concomitant]
     Indication: PRODUCT USED FOR UNKNOWN INDICATION
     Dosage: UNK, PRN
     Route: 065
  10. CEFTRIAXONE SODIUM [Concomitant]
     Indication: UROSEPSIS
     Dosage: 2 G, ONCE
     Route: 042
  11. CEFTRIAXONE SODIUM [Concomitant]
     Indication: OBSTRUCTIVE UROPATHY
  12. PIPERACILLIN SODIUM (+) TAZOBACTAM SODIUM [Concomitant]
     Indication: UROSEPSIS
     Dosage: 2.25 G, Q8H
  13. PIPERACILLIN SODIUM (+) TAZOBACTAM SODIUM [Concomitant]
     Indication: OBSTRUCTIVE UROPATHY
  14. MEROPENEM [Concomitant]
     Indication: UROSEPSIS
     Dosage: 500 MG, BID
     Route: 042
  15. MEROPENEM [Concomitant]
     Indication: OBSTRUCTIVE UROPATHY
  16. TIGECYCLINE [Concomitant]
     Indication: UROSEPSIS
     Dosage: 100 MG, ONCE
     Route: 042
  17. TIGECYCLINE [Concomitant]
     Indication: OBSTRUCTIVE UROPATHY
     Dosage: 50 MG, BID
     Route: 042

REACTIONS (9)
  - Hypersensitivity vasculitis [Recovered/Resolved]
  - Vasculitic rash [Recovered/Resolved]
  - Bladder outlet obstruction [Unknown]
  - Flank pain [Unknown]
  - Prostatitis [Unknown]
  - Cardiac failure [Unknown]
  - Dyspnoea [Unknown]
  - White blood cell count increased [Unknown]
  - Neutrophil count increased [Unknown]
